FAERS Safety Report 9527440 (Version 1)
Quarter: 2013Q3

REPORT INFORMATION
  Report Type: Report from Study
  Country: US (occurrence: US)
  Receive Date: 20130917
  Receipt Date: 20130917
  Transmission Date: 20140515
  Serious: Yes (Hospitalization)
  Sender: FDA-Public Use
  Company Number: US-ROCHE-1274374

PATIENT
  Age: 61 Year
  Sex: Male
  Weight: 72.64 kg

DRUGS (3)
  1. XOLAIR [Suspect]
     Indication: ASTHMA
     Route: 065
     Dates: start: 2012
  2. PROAIR (UNITED STATES) [Concomitant]
     Indication: ASTHMA
     Dosage: AS REQUIRED
     Route: 055
  3. SINGULAIR [Concomitant]
     Indication: ASTHMA
     Dosage: START DATE: 2 MONTHS AGO
     Route: 048

REACTIONS (2)
  - Surgery [Unknown]
  - Asthma [Unknown]
